FAERS Safety Report 5783165-9 (Version None)
Quarter: 2008Q2

REPORT INFORMATION
  Report Type: 
  Country: None (occurrence: None)
  Receive Date: 20080619
  Receipt Date: 20080619
  Transmission Date: 20081010
  Serious: Yes (Other)
  Sender: FDA-Public Use
  Company Number: None

PATIENT
  Age: 23 Year
  Sex: Male
  Weight: 78.0187 kg

DRUGS (1)
  1. LEVAQUIN [Suspect]
     Indication: BRONCHOPNEUMONIA
     Dosage: 500 MG Q24H IV DRIP
     Route: 041
     Dates: start: 20080617, end: 20080617

REACTIONS (4)
  - BLISTER [None]
  - EYE SWELLING [None]
  - OCULAR HYPERAEMIA [None]
  - ORAL PAIN [None]
